FAERS Safety Report 4830590-6 (Version None)
Quarter: 2005Q4

REPORT INFORMATION
  Report Type: 
  Country: None (occurrence: None)
  Receive Date: 20051117
  Receipt Date: 20051102
  Transmission Date: 20060501
  Serious: Yes (Hospitalization)
  Sender: FDA-Public Use
  Company Number: ES-AVENTIS-200514151EU

PATIENT
  Age: 52 Year
  Sex: Male
  Weight: 86 kg

DRUGS (6)
  1. CLEXANE [Suspect]
     Route: 058
  2. CLEXANE [Suspect]
     Route: 058
  3. ENALAPRIL [Concomitant]
  4. FENTANYL [Concomitant]
     Route: 061
  5. TOPIRAMATE [Concomitant]
  6. NSAID'S [Concomitant]

REACTIONS (2)
  - EXTRADURAL HAEMATOMA [None]
  - SPINAL CORD COMPRESSION [None]
